FAERS Safety Report 5106915-3 (Version None)
Quarter: 2006Q3

REPORT INFORMATION
  Report Type: 
  Country: None (occurrence: None)
  Receive Date: 20060913
  Receipt Date: 20060829
  Transmission Date: 20061208
  Serious: Yes (Hospitalization)
  Sender: FDA-Public Use
  Company Number: US-2006-002335

PATIENT
  Age: 84 Year
  Sex: Male
  Weight: 77.1 kg

DRUGS (18)
  1. BETASERON [Suspect]
     Indication: MULTIPLE SCLEROSIS
     Dosage: 8 MIU, EVERY 2D, SUBCUTANEOUS
     Route: 058
     Dates: start: 20050501
  2. MORPHINE [Concomitant]
  3. NEURONTIN [Concomitant]
  4. TRILEPTAL [Concomitant]
  5. WELLBUTRIN [Concomitant]
  6. LEXAPRO (ESCITALOPRAM OXALATE) [Concomitant]
  7. FLOMAX [Concomitant]
  8. ZOCOR [Concomitant]
  9. VITAMIN E [Concomitant]
  10. ASPIRIN [Concomitant]
  11. CENTRUM SILVER (VITAMINS NOS, ZINC, CALCIUM, MINERALS NOS, RETINOL, TO [Concomitant]
  12. TYLENOL PM (DIPHENHYDRAMINE) [Concomitant]
  13. OXYCONTIN [Concomitant]
  14. HYDROCODONE [Concomitant]
  15. IBUPROFEN [Concomitant]
  16. ZINC [Concomitant]
  17. SELENIUM SULFIDE [Concomitant]
  18. TUMS [Concomitant]

REACTIONS (8)
  - ASTHENIA [None]
  - BRAIN OEDEMA [None]
  - DYSARTHRIA [None]
  - FALL [None]
  - HEAD INJURY [None]
  - HYPOTENSION [None]
  - PAIN [None]
  - TRAUMATIC BRAIN INJURY [None]
